FAERS Safety Report 10814978 (Version 1)
Quarter: 2015Q1

REPORT INFORMATION
  Report Type: Report from Study
  Country: SA (occurrence: SA)
  Receive Date: 20150218
  Receipt Date: 20150218
  Transmission Date: 20150721
  Serious: Yes (Other)
  Sender: FDA-Public Use
  Company Number: SA-SA-2015SA019486

PATIENT
  Age: 68 Year
  Sex: Female

DRUGS (2)
  1. CLOFARABINE [Suspect]
     Active Substance: CLOFARABINE
     Indication: ACUTE MYELOID LEUKAEMIA
     Dosage: INDUCTION: 40MG/M2 IV DAY 1-5 (REMISSION DAY 28)
     Route: 041
  2. CLOFARABINE [Suspect]
     Active Substance: CLOFARABINE
     Indication: ACUTE MYELOID LEUKAEMIA
     Dosage: CONSOLIDATION: 30MG/M2 IV DAY 1-5 (2 COURSES Q4 WEEKLY)
     Route: 041

REACTIONS (11)
  - Hyperbilirubinaemia [Unknown]
  - Cardiac failure [Unknown]
  - Neutropenia [Unknown]
  - Hepatic enzyme increased [Unknown]
  - Thrombocytopenia [Unknown]
  - Vomiting [Unknown]
  - Fungal infection [Unknown]
  - Sepsis [Unknown]
  - Mucosal inflammation [Unknown]
  - Rash [Unknown]
  - Bacterial infection [Unknown]
